APPROVED DRUG PRODUCT: BUPRENORPHINE HYDROCHLORIDE AND NALOXONE HYDROCHLORIDE
Active Ingredient: BUPRENORPHINE HYDROCHLORIDE; NALOXONE HYDROCHLORIDE
Strength: EQ 8MG BASE;EQ 2MG BASE
Dosage Form/Route: TABLET;SUBLINGUAL
Application: A203326 | Product #002 | TE Code: AB
Applicant: HIKMA PHARMACEUTICALS USA INC
Approved: Jun 27, 2014 | RLD: No | RS: Yes | Type: RX